FAERS Safety Report 8833169 (Version 1)
Quarter: 2012Q4

REPORT INFORMATION
  Report Type: 
  Country: JP (occurrence: JP)
  Receive Date: 20121010
  Receipt Date: 20121010
  Transmission Date: 20130627
  Serious: Yes (Other)
  Sender: FDA-Public Use
  Company Number: JP-ASTELLAS-2012JP009365

PATIENT
  Age: 17 Year

DRUGS (5)
  1. PROGRAF [Suspect]
     Indication: IMMUNOSUPPRESSANT DRUG THERAPY
     Route: 065
  2. PROGRAF [Suspect]
     Route: 065
  3. PREDONINE                          /00016201/ [Concomitant]
     Indication: ACUTE GRAFT VERSUS HOST DISEASE
     Route: 065
  4. PREDONINE                          /00016201/ [Concomitant]
     Route: 065
  5. FOSCAVIR [Concomitant]
     Indication: CYTOMEGALOVIRUS TEST POSITIVE
     Route: 065

REACTIONS (3)
  - Drug ineffective [Unknown]
  - Acute graft versus host disease [Unknown]
  - Pneumothorax [Recovering/Resolving]
